FAERS Safety Report 4805384-8 (Version None)
Quarter: 2005Q4

REPORT INFORMATION
  Report Type: 
  Country: None (occurrence: None)
  Receive Date: 20051017
  Receipt Date: 20051004
  Transmission Date: 20060501
  Serious: Yes (Hospitalization, Other)
  Sender: FDA-Public Use
  Company Number: 2005137831

PATIENT
  Age: 63 Year
  Sex: Male

DRUGS (4)
  1. CELEBREX [Suspect]
     Indication: ARTHRITIS
     Dosage: 25 MG
     Dates: start: 19900101, end: 20010214
  2. CELEBREX [Suspect]
     Indication: ARTHROPATHY
     Dosage: 25 MG
     Dates: start: 19900101, end: 20010214
  3. GLYBURIDE [Concomitant]
  4. ASPIRIN [Concomitant]

REACTIONS (6)
  - ASTHENIA [None]
  - CARDIAC VALVE DISEASE [None]
  - MALAISE [None]
  - MYOCARDIAL INFARCTION [None]
  - POST PROCEDURAL COMPLICATION [None]
  - WEIGHT INCREASED [None]
